FAERS Safety Report 4350691-9 (Version None)
Quarter: 2004Q2

REPORT INFORMATION
  Report Type: 
  Country: None (occurrence: None)
  Receive Date: 20040427
  Receipt Date: 19960521
  Transmission Date: 20050107
  Serious: Yes (Death, Disabling, Other)
  Sender: FDA-Public Use
  Company Number: DEU-1996-0000399

PATIENT
  Age: 36 Year
  Sex: Male

DRUGS (1)
  1. POVIDONE IODINE [Suspect]
     Indication: SURGERY
     Dosage: 100 ML, SINGLE, INTRATRACHEAL
     Route: 039

REACTIONS (4)
  - IATROGENIC INJURY [None]
  - MEDICATION ERROR [None]
  - PNEUMONIA [None]
  - SHOCK [None]
